FAERS Safety Report 6202493-6 (Version None)
Quarter: 2009Q2

REPORT INFORMATION
  Report Type: 
  Country: None (occurrence: None)
  Receive Date: 20090521
  Receipt Date: 20090521
  Transmission Date: 20091009
  Serious: Yes (Death)
  Sender: FDA-Public Use
  Company Number: None

PATIENT
  Age: 62 Year
  Sex: Female
  Weight: 79.7 kg

DRUGS (1)
  1. ACTIVASE [Suspect]
     Indication: ISCHAEMIC STROKE
     Dosage: 8.1 MG ONE-TIME IVP;  81.9 MG ONE-TIME IVPB
     Route: 042
     Dates: start: 20090210

REACTIONS (4)
  - BLOOD PRESSURE INCREASED [None]
  - CONVULSION [None]
  - HAEMORRHAGE [None]
  - HEART RATE INCREASED [None]
